FAERS Safety Report 4994471-X (Version None)
Quarter: 2006Q2

REPORT INFORMATION
  Report Type: 
  Country: None (occurrence: None)
  Receive Date: 20060505
  Receipt Date: 20050414
  Transmission Date: 20061013
  Serious: Yes (Other)
  Sender: FDA-Public Use
  Company Number: US-MERCK-0504USA02547

PATIENT
  Age: 43 Year
  Sex: Female
  Weight: 73 kg

DRUGS (2)
  1. VIOXX [Suspect]
     Indication: ARTHRITIS
     Route: 048
     Dates: start: 20000101, end: 20010101
  2. LORTAB [Concomitant]
     Route: 065

REACTIONS (4)
  - CARDIAC MURMUR [None]
  - CARDIOVASCULAR DISORDER [None]
  - FOOT FRACTURE [None]
  - HEART RATE IRREGULAR [None]
